FAERS Safety Report 9255690 (Version 2)
Quarter: 2013Q2

REPORT INFORMATION
  Report Type: Report from Study
  Country: SK (occurrence: SK)
  Receive Date: 20130425
  Receipt Date: 20130603
  Transmission Date: 20140414
  Serious: Yes (Hospitalization)
  Sender: FDA-Public Use
  Company Number: PHHO2013SK004260

PATIENT
  Age: 77 Year
  Sex: Male
  Weight: 74 kg

DRUGS (11)
  1. BLINDED ALISKIREN [Suspect]
     Indication: CARDIAC FAILURE
     Dosage: CODE NOT BROKEN
     Route: 048
     Dates: start: 20120113, end: 20120129
  2. BLINDED ENALAPRIL [Suspect]
     Indication: CARDIAC FAILURE
     Dosage: CODE NOT BROKEN
     Route: 048
     Dates: start: 20120113, end: 20120129
  3. BLINDED NO TREATMENT RECEIVED [Suspect]
     Indication: CARDIAC FAILURE
     Dosage: CODE NOT BROKEN
     Route: 048
     Dates: start: 20120113, end: 20120129
  4. BLINDED ALISKIREN [Suspect]
     Dosage: CODE NOT BROKEN
     Dates: start: 20120130, end: 20130115
  5. BLINDED ENALAPRIL [Suspect]
     Dosage: CODE NOT BROKEN
     Dates: start: 20120130, end: 20130115
  6. BLINDED NO TREATMENT RECEIVED [Suspect]
     Dosage: CODE NOT BROKEN
     Dates: start: 20120130, end: 20130115
  7. FUROSEMIDE [Suspect]
     Indication: CARDIAC FAILURE CHRONIC
     Dosage: 250 MG, 1/2 -0-1/2 TAB
     Route: 048
     Dates: start: 20130314, end: 20130329
  8. CONCOR [Concomitant]
     Indication: CARDIAC FAILURE CHRONIC
     Dosage: 2.5 MG, QD
     Route: 048
     Dates: start: 20130220
  9. CONCOR [Concomitant]
     Indication: HYPERTENSION
  10. VEROSPIRON [Concomitant]
     Indication: CARDIAC FAILURE CHRONIC
     Dosage: 25 MG, QD
     Route: 048
     Dates: start: 20130319
  11. HYDROCHLOROTHIAZIDE [Concomitant]
     Indication: CARDIAC FAILURE CHRONIC
     Dosage: 12.5 MG, Q5W
     Route: 048
     Dates: start: 20130220

REACTIONS (3)
  - Renal failure chronic [Recovered/Resolved]
  - Cardiac failure chronic [Recovered/Resolved]
  - Liver disorder [Recovered/Resolved]
